FAERS Safety Report 6389742-9 (Version None)
Quarter: 2009Q4

REPORT INFORMATION
  Report Type: 
  Country: None (occurrence: None)
  Receive Date: 20091002
  Receipt Date: 20091002
  Transmission Date: 20100525
  Serious: Yes (Life-Threatening, Hospitalization, Other)
  Sender: FDA-Public Use
  Company Number: None

PATIENT
  Age: 77 Year
  Sex: Male
  Weight: 83.6 kg

DRUGS (3)
  1. ERYTHROMYCIN [Suspect]
     Indication: PHARYNGITIS STREPTOCOCCAL
     Dosage: ERYTHROMYCIN 1500 MG BID PO
     Dates: start: 20090622, end: 20090704
  2. ERYTHROMYCIN [Suspect]
     Indication: RHEUMATIC FEVER
     Dosage: ERYTHROMYCIN 1500 MG BID PO
     Dates: start: 20090622, end: 20090704
  3. SIMVASTATIN [Suspect]
     Dosage: SIMVASTATIN 40 MG QD PO

REACTIONS (3)
  - HAEMODIALYSIS [None]
  - RENAL FAILURE ACUTE [None]
  - RHABDOMYOLYSIS [None]
